FAERS Safety Report 5848875-3 (Version None)
Quarter: 2008Q3

REPORT INFORMATION
  Report Type: 
  Country: None (occurrence: None)
  Receive Date: 20080818
  Receipt Date: 20080806
  Transmission Date: 20090109
  Serious: Yes (Death)
  Sender: FDA-Public Use
  Company Number: JP-PFIZER INC-2008063925

PATIENT
  Sex: Female
  Weight: 40 kg

DRUGS (16)
  1. REVATIO [Suspect]
     Indication: PULMONARY ARTERIAL HYPERTENSION
     Dosage: DAILY DOSE:60MG
     Route: 048
     Dates: start: 20080708, end: 20080721
  2. LASIX [Concomitant]
     Route: 042
  3. ALDACTONE [Concomitant]
     Route: 048
  4. DORNER [Concomitant]
     Route: 048
  5. WARFARIN SODIUM [Concomitant]
     Route: 048
  6. MIDAZOLAM [Concomitant]
     Dates: start: 20080710, end: 20080714
  7. DIGOXIN [Concomitant]
     Route: 048
  8. HANP [Concomitant]
     Route: 042
  9. ALLOPURINOL [Concomitant]
     Route: 048
  10. SIGMART [Concomitant]
     Route: 048
  11. LANSOPRAZOLE [Concomitant]
     Route: 048
  12. DOGMATYL [Concomitant]
     Route: 048
  13. ALOSENN [Concomitant]
     Route: 048
  14. MERISLON [Concomitant]
     Route: 048
  15. SEROQUEL [Concomitant]
     Route: 048
  16. MEROPEN [Concomitant]
     Route: 042

REACTIONS (1)
  - CARDIAC FAILURE [None]
